FAERS Safety Report 12786218 (Version 2)
Quarter: 2018Q3

REPORT INFORMATION
  Report Type: Spontaneous
  Country: US (occurrence: US)
  Receive Date: 20160927
  Receipt Date: 20180924
  Transmission Date: 20181010
  Serious: No
  Sender: FDA-Public Use
  Company Number: US-FRI-1000085911

PATIENT
  Age: 68 Year
  Sex: Male
  Weight: 86.17 kg

DRUGS (1)
  1. LINZESS [Suspect]
     Active Substance: LINACLOTIDE
     Indication: CONSTIPATION
     Dosage: 290 MG, UNK
     Route: 048

REACTIONS (9)
  - Drug dispensing error [Unknown]
  - Off label use [Unknown]
  - Drug ineffective for unapproved indication [Unknown]
  - Constipation [Unknown]
  - Diarrhoea [Unknown]
  - Abdominal discomfort [Unknown]
  - Abnormal faeces [Unknown]
  - Bowel movement irregularity [Unknown]
  - Abdominal pain lower [Not Recovered/Not Resolved]

NARRATIVE: CASE EVENT DATE: 20160725
